FAERS Safety Report 5806276-8 (Version None)
Quarter: 2008Q3

REPORT INFORMATION
  Report Type: 
  Country: None (occurrence: None)
  Receive Date: 20080708
  Receipt Date: 20080620
  Transmission Date: 20090109
  Serious: Yes (Other)
  Sender: FDA-Public Use
  Company Number: 2005BI013588

PATIENT
  Age: 83 Year
  Sex: Male
  Weight: 89.3586 kg

DRUGS (8)
  1. ZAVALIN [Suspect]
     Indication: NON-HODGKIN'S LYMPHOMA
     Dosage: 32 MCI;1X;IV
     Route: 042
     Dates: start: 20050615, end: 20050622
  2. RITUXIMAB [Concomitant]
  3. RITUXIMAB [Concomitant]
  4. ALBUTEROL [Concomitant]
  5. SPIRIVA [Concomitant]
  6. EQUATE [Concomitant]
  7. ALLOPURINOL [Concomitant]
  8. PREDNISONE TAB [Concomitant]

REACTIONS (9)
  - CAUSTIC INJURY [None]
  - IMPAIRED HEALING [None]
  - INJECTION SITE ERYTHEMA [None]
  - INJECTION SITE EXFOLIATION [None]
  - INJECTION SITE EXTRAVASATION [None]
  - INJECTION SITE IRRITATION [None]
  - INJECTION SITE VESICLES [None]
  - PURULENT DISCHARGE [None]
  - SKIN NECROSIS [None]
